FAERS Safety Report 15470263 (Version 2)
Quarter: 2018Q4

REPORT INFORMATION
  Report Type: Spontaneous
  Country: US (occurrence: US)
  Receive Date: 20181005
  Receipt Date: 20181019
  Transmission Date: 20190205
  Serious: No
  Sender: FDA-Public Use
  Company Number: US-BAUSCH-BL-2018-026710

PATIENT
  Sex: Male
  Weight: 77.18 kg

DRUGS (6)
  1. OCEAN SALINE NASAL SPRAY [Suspect]
     Active Substance: SODIUM CHLORIDE
     Dosage: TWO SPRAYS IN EACH NOSTRIL TWO TO THREE TIMES DAILY
     Route: 045
  2. OCEAN SALINE NASAL SPRAY [Suspect]
     Active Substance: SODIUM CHLORIDE
     Dosage: TWO SPRAYS IN EACH NOSTRIL TWO TO THREE TIMES DAILY
     Route: 045
  3. OCEAN SALINE NASAL SPRAY [Suspect]
     Active Substance: SODIUM CHLORIDE
     Dosage: TWO SPRAYS IN EACH NOSTRIL TWO TO THREE TIMES DAILY
     Route: 045
  4. OCEAN SALINE NASAL SPRAY [Suspect]
     Active Substance: SODIUM CHLORIDE
     Dosage: TWO SPRAYS IN EACH NOSTRIL TWO TO THREE TIMES DAILY
     Route: 045
  5. OCEAN SALINE NASAL SPRAY [Suspect]
     Active Substance: SODIUM CHLORIDE
     Indication: NASAL DRYNESS
     Dosage: TWO SPRAYS IN EACH NOSTRIL TWO TO THREE TIMES DAILY?BEGAN OCEAN NASAL SPRAY ABOUT FIFTEEN YEARS AGO
     Route: 045
  6. OCEAN SALINE NASAL SPRAY [Suspect]
     Active Substance: SODIUM CHLORIDE
     Dosage: TWO SPRAYS IN EACH NOSTRIL TWO TO THREE TIMES DAILY
     Route: 045

REACTIONS (5)
  - Product lot number issue [Unknown]
  - Product expiration date issue [Unknown]
  - Product quality issue [Unknown]
  - No adverse event [Unknown]
  - Expired product administered [Unknown]
